FAERS Safety Report 7190592-4 (Version None)
Quarter: 2010Q4

REPORT INFORMATION
  Report Type: 
  Country: None (occurrence: None)
  Receive Date: 20101223
  Receipt Date: 20101214
  Transmission Date: 20110411
  Serious: Yes (Hospitalization)
  Sender: FDA-Public Use
  Company Number: GB-B.I. PHARMACEUTICALS,INC./RIDGEFIELD-2010-UK-01196UK

PATIENT
  Sex: Female
  Weight: 82.1 kg

DRUGS (10)
  1. PRADAXA [Suspect]
     Indication: THROMBOSIS PROPHYLAXIS
     Dosage: 220 MG
     Route: 048
     Dates: start: 20101127, end: 20101205
  2. SIMVASTATIN [Concomitant]
     Dosage: 40 MG
     Route: 048
  3. PULMICORT [Concomitant]
     Indication: ASTHMA
     Dosage: 400 MCG
     Route: 055
  4. PARACETAMOL [Concomitant]
     Indication: PAIN
     Dosage: 4 G
     Route: 048
     Dates: start: 20101127
  5. OMEPRAZOLE [Concomitant]
     Dosage: 40 MG
     Route: 048
     Dates: start: 20101127
  6. DICLOFENAC [Concomitant]
     Indication: PAIN
     Dosage: 150 MG
     Route: 048
     Dates: start: 20101127, end: 20101128
  7. BENDROFLUMETHIAZIDE [Concomitant]
     Indication: HYPERTENSION
     Dosage: 2.5 MG
     Route: 048
  8. CLOPIDOGREL [Concomitant]
     Dosage: 75 MG
     Route: 048
     Dates: end: 20101125
  9. LACTULOSE [Concomitant]
     Indication: CONSTIPATION
     Dosage: 30 ML
     Route: 048
     Dates: start: 20101129
  10. TRAMADOL [Concomitant]
     Indication: PAIN
     Dosage: 50-100MG QDS
     Dates: start: 20101203

REACTIONS (3)
  - BLISTER [None]
  - POST PROCEDURAL HAEMATOMA [None]
  - WOUND COMPLICATION [None]
